FAERS Safety Report 22227248 (Version 11)
Quarter: 2025Q3

REPORT INFORMATION
  Report Type: Report from Study
  Country: EU (occurrence: EU)
  Receive Date: 20230419
  Receipt Date: 20250821
  Transmission Date: 20251021
  Serious: Yes (Hospitalization, Other)
  Sender: ASPEN
  Company Number: EU-SA-SAC20230329000452

PATIENT

DRUGS (44)
  1. DEXAMETHASONE [Suspect]
     Active Substance: DEXAMETHASONE
     Indication: Plasma cell myeloma refractory
     Dosage: 40 MG, 1 DOSE WEEKLY (40 MG, QW)
     Route: 065
     Dates: start: 20230206, end: 20230306
  2. DEXAMETHASONE [Suspect]
     Active Substance: DEXAMETHASONE
     Dosage: 40 MG, 1 DOSE WEEKLY (40 MG, QW)
     Route: 065
     Dates: start: 20230306, end: 20230324
  3. DEXAMETHASONE [Suspect]
     Active Substance: DEXAMETHASONE
     Dosage: 40 MG, 1 DOSE WEEKLY
     Route: 065
     Dates: start: 20230403, end: 20230424
  4. DEXAMETHASONE [Suspect]
     Active Substance: DEXAMETHASONE
     Dosage: UNK MG, 1 DOSE WEEKLY
     Route: 065
     Dates: start: 20230420, end: 20230424
  5. DEXAMETHASONE [Suspect]
     Active Substance: DEXAMETHASONE
     Dosage: 40 MG, 1 DOSE WEEKLY, QW
     Route: 065
     Dates: start: 20230403, end: 20230417
  6. POMALIDOMIDE [Suspect]
     Active Substance: POMALIDOMIDE
     Indication: Plasma cell myeloma refractory
     Dosage: 4 MG, QD
     Route: 065
     Dates: start: 20230206, end: 20230226
  7. POMALIDOMIDE [Suspect]
     Active Substance: POMALIDOMIDE
     Dosage: 4 MG, QD
     Route: 065
     Dates: start: 20230306, end: 20230324
  8. POMALIDOMIDE [Suspect]
     Active Substance: POMALIDOMIDE
     Dosage: 4 UNK
     Route: 065
     Dates: start: 20230403, end: 20230424
  9. POMALIDOMIDE [Suspect]
     Active Substance: POMALIDOMIDE
     Dosage: 4 MG, QD
     Route: 065
     Dates: start: 20230306, end: 20230319
  10. POMALIDOMIDE [Suspect]
     Active Substance: POMALIDOMIDE
     Dosage: 4 UNK
     Route: 065
     Dates: start: 20230320, end: 20230324
  11. POMALIDOMIDE [Suspect]
     Active Substance: POMALIDOMIDE
     Dosage: 4 UNK
     Route: 065
     Dates: start: 20230226
  12. POMALIDOMIDE [Suspect]
     Active Substance: POMALIDOMIDE
     Dosage: 4 UNK
     Route: 065
     Dates: start: 20230403, end: 20230417
  13. POMALIDOMIDE [Suspect]
     Active Substance: POMALIDOMIDE
     Dosage: 0 MG, QD
     Route: 065
     Dates: start: 20230420, end: 20230424
  14. ISATUXIMAB [Suspect]
     Active Substance: ISATUXIMAB
     Indication: Plasma cell myeloma refractory
     Dosage: 910 MG/KG, QW
     Route: 065
     Dates: start: 20230206, end: 20230227
  15. ISATUXIMAB [Suspect]
     Active Substance: ISATUXIMAB
     Dosage: 1774 MG, 1 DOSE WEEKLY(887 MG, BIW)
     Route: 065
     Dates: start: 20230306, end: 20230327
  16. ISATUXIMAB [Suspect]
     Active Substance: ISATUXIMAB
     Dosage: 1774 MG (887 MG, BIW)
     Route: 065
     Dates: start: 20230403, end: 20230417
  17. ISATUXIMAB [Suspect]
     Active Substance: ISATUXIMAB
     Route: 065
     Dates: start: 20230420, end: 20230424
  18. SULFAMETHOXAZOLE\TRIMETHOPRIM [Concomitant]
     Active Substance: SULFAMETHOXAZOLE\TRIMETHOPRIM
     Indication: Prophylaxis
     Route: 065
     Dates: start: 20201204
  19. PANTOPRAZOLE SODIUM [Concomitant]
     Active Substance: PANTOPRAZOLE SODIUM
     Indication: Prophylaxis
     Route: 065
     Dates: start: 20201204
  20. ACYCLOVIR [Concomitant]
     Active Substance: ACYCLOVIR
     Indication: Prophylaxis
     Route: 065
     Dates: start: 20201204
  21. LAMIVUDINE [Concomitant]
     Active Substance: LAMIVUDINE
     Indication: Prophylaxis
     Route: 065
     Dates: start: 20230206
  22. FOLIC ACID [Concomitant]
     Active Substance: FOLIC ACID
     Indication: Prophylaxis
     Route: 065
     Dates: start: 20201204
  23. CALCIUM [Concomitant]
     Active Substance: CALCIUM
     Indication: Prophylaxis
     Route: 065
     Dates: start: 20201204
  24. ENOXAPARIN SODIUM [Concomitant]
     Active Substance: ENOXAPARIN SODIUM
     Indication: Prophylaxis
     Route: 065
     Dates: start: 20230206, end: 20230324
  25. OXYCODONE [Concomitant]
     Active Substance: OXYCODONE
     Indication: Prophylaxis
     Route: 065
     Dates: start: 20220627
  26. LEVOCETIRIZINE DIHYDROCHLORIDE [Concomitant]
     Active Substance: LEVOCETIRIZINE DIHYDROCHLORIDE
     Indication: Prophylaxis
     Route: 065
     Dates: start: 20230206, end: 20230206
  27. LEVOCETIRIZINE DIHYDROCHLORIDE [Concomitant]
     Active Substance: LEVOCETIRIZINE DIHYDROCHLORIDE
     Route: 065
     Dates: start: 20230320, end: 20230320
  28. LEVOCETIRIZINE DIHYDROCHLORIDE [Concomitant]
     Active Substance: LEVOCETIRIZINE DIHYDROCHLORIDE
     Route: 065
     Dates: start: 20230403, end: 20230403
  29. LEVOCETIRIZINE DIHYDROCHLORIDE [Concomitant]
     Active Substance: LEVOCETIRIZINE DIHYDROCHLORIDE
     Route: 065
     Dates: start: 20230213, end: 20230213
  30. LEVOCETIRIZINE DIHYDROCHLORIDE [Concomitant]
     Active Substance: LEVOCETIRIZINE DIHYDROCHLORIDE
     Route: 065
     Dates: start: 20230417, end: 20230417
  31. LEVOCETIRIZINE DIHYDROCHLORIDE [Concomitant]
     Active Substance: LEVOCETIRIZINE DIHYDROCHLORIDE
     Route: 065
     Dates: start: 20230306, end: 20230306
  32. LEVOCETIRIZINE DIHYDROCHLORIDE [Concomitant]
     Active Substance: LEVOCETIRIZINE DIHYDROCHLORIDE
     Route: 065
     Dates: start: 20230227, end: 20230227
  33. LEVOCETIRIZINE DIHYDROCHLORIDE [Concomitant]
     Active Substance: LEVOCETIRIZINE DIHYDROCHLORIDE
     Route: 065
     Dates: start: 20230220, end: 20230220
  34. CHOLECALCIFEROL [Concomitant]
     Active Substance: CHOLECALCIFEROL
     Indication: Prophylaxis
     Route: 065
     Dates: start: 20201204
  35. METFORMIN [Concomitant]
     Active Substance: METFORMIN HYDROCHLORIDE
     Indication: Type 2 diabetes mellitus
     Route: 065
     Dates: start: 20220307
  36. TAMSULOSIN HYDROCHLORIDE [Concomitant]
     Active Substance: TAMSULOSIN HYDROCHLORIDE
     Indication: Benign prostatic hyperplasia
     Route: 065
     Dates: start: 20220307
  37. Befact forte [Concomitant]
     Indication: Prophylaxis
     Route: 065
     Dates: start: 20230202
  38. GABAPENTIN [Concomitant]
     Active Substance: GABAPENTIN
     Indication: Polyneuropathy
     Route: 065
     Dates: start: 20220307
  39. LIDOCAINE HYDROCHLORIDE [Concomitant]
     Active Substance: LIDOCAINE HYDROCHLORIDE
     Indication: Product used for unknown indication
     Route: 065
     Dates: start: 20230313
  40. De icol [Concomitant]
     Indication: Product used for unknown indication
     Route: 065
     Dates: start: 20230317
  41. De icol [Concomitant]
     Indication: Prophylaxis
  42. OXYCODONE HYDROCHLORIDE [Concomitant]
     Active Substance: OXYCODONE HYDROCHLORIDE
     Indication: Prophylaxis
     Route: 065
     Dates: start: 20220627
  43. SOLU-CORTEF [Concomitant]
     Active Substance: HYDROCORTISONE SODIUM SUCCINATE
     Indication: Product used for unknown indication
     Route: 065
     Dates: start: 20230206, end: 20230206
  44. Prometazina [Concomitant]
     Indication: Prophylaxis
     Route: 065
     Dates: start: 20230213, end: 20230213

REACTIONS (14)
  - Pulmonary embolism [Recovered/Resolved]
  - Tuberculosis [Not Recovered/Not Resolved]
  - Pneumococcal sepsis [Recovered/Resolved]
  - Infection [Unknown]
  - Headache [Recovered/Resolved]
  - Middle ear inflammation [Recovered/Resolved]
  - Neutrophil count decreased [Recovered/Resolved]
  - Ear infection [Recovering/Resolving]
  - Fatigue [Recovered/Resolved]
  - Platelet count decreased [Not Recovered/Not Resolved]
  - Epistaxis [Recovered/Resolved]
  - Diarrhoea [Recovered/Resolved]
  - Drug hypersensitivity [Recovered/Resolved]
  - Infusion related reaction [Recovered/Resolved]

NARRATIVE: CASE EVENT DATE: 20230206
